FAERS Safety Report 9453104 (Version 1)
Quarter: 2013Q3

REPORT INFORMATION
  Report Type: Spontaneous
  Country: US (occurrence: US)
  Receive Date: 20130812
  Receipt Date: 20130812
  Transmission Date: 20140515
  Serious: Yes (Other)
  Sender: FDA-Public Use
  Company Number: US-PFIZER INC-2013233147

PATIENT
  Sex: Male

DRUGS (2)
  1. LIPITOR [Suspect]
     Dosage: 20 MG, ONCE A DAY
  2. ZETIA [Concomitant]
     Dosage: 10 MG, UNK

REACTIONS (2)
  - Neuropathy peripheral [Unknown]
  - Burning sensation [Unknown]
